FAERS Safety Report 9158210 (Version 1)
Quarter: 2013Q1

REPORT INFORMATION
  Report Type: Spontaneous
  Country: AU (occurrence: AU)
  Receive Date: 20130312
  Receipt Date: 20130312
  Transmission Date: 20140127
  Serious: Yes (Other)
  Sender: FDA-Public Use
  Company Number: AU-ROCHE-1200334

PATIENT
  Sex: Male

DRUGS (4)
  1. AVASTIN [Suspect]
     Indication: COLON CANCER METASTATIC
     Route: 065
  2. FOLINIC ACID [Concomitant]
     Indication: COLON CANCER METASTATIC
  3. FLUOROURACIL [Concomitant]
     Indication: COLON CANCER METASTATIC
  4. OXALIPLATIN [Concomitant]
     Indication: COLON CANCER METASTATIC

REACTIONS (1)
  - Disease progression [Unknown]
